FAERS Safety Report 21583525 (Version 3)
Quarter: 2022Q4

REPORT INFORMATION
  Report Type: Spontaneous
  Country: PL (occurrence: PL)
  Receive Date: 20221111
  Receipt Date: 20221122
  Transmission Date: 20230113
  Serious: Yes (Other)
  Sender: FDA-Public Use
  Company Number: PL-002147023-NVSC2022PL249998

PATIENT
  Age: 37 Year
  Sex: Female

DRUGS (10)
  1. IRON [Suspect]
     Active Substance: IRON
     Indication: Anaemia
     Dosage: 2X1 TABLET
     Route: 065
  2. IRON [Suspect]
     Active Substance: IRON
     Dosage: 2X1 TABLET
     Route: 065
     Dates: start: 20210730, end: 20211008
  3. METOPROLOL [Suspect]
     Active Substance: METOPROLOL
     Indication: Cardiomyopathy
     Dosage: 75 MG, QD
     Route: 065
     Dates: start: 20210730
  4. METOPROLOL [Suspect]
     Active Substance: METOPROLOL
     Dosage: 100 MG, QD
     Route: 065
     Dates: start: 20211008
  5. METOPROLOL [Suspect]
     Active Substance: METOPROLOL
     Dosage: 100 MG, QD
     Route: 065
     Dates: start: 20220119
  6. BISOPROLOL [Suspect]
     Active Substance: BISOPROLOL
     Indication: Hypertension
     Dosage: UNK
     Route: 065
     Dates: start: 2014
  7. BISOPROLOL [Suspect]
     Active Substance: BISOPROLOL
     Indication: Myocarditis
  8. METHYLDOPA [Suspect]
     Active Substance: METHYLDOPA
     Indication: Cardiomyopathy
     Dosage: UNK
     Route: 065
  9. EPLERENONE [Suspect]
     Active Substance: EPLERENONE
     Indication: Hypertension
     Dosage: UNK
     Route: 065
     Dates: start: 2014
  10. EPLERENONE [Suspect]
     Active Substance: EPLERENONE
     Indication: Myocarditis

REACTIONS (3)
  - Stillbirth [Unknown]
  - Maternal exposure before pregnancy [Unknown]
  - Maternal exposure during pregnancy [Unknown]

NARRATIVE: CASE EVENT DATE: 20210826
